FAERS Safety Report 5257688-5 (Version None)
Quarter: 2007Q1

REPORT INFORMATION
  Report Type: 
  Country: None (occurrence: None)
  Receive Date: 20070302
  Receipt Date: 20070223
  Transmission Date: 20070707
  Serious: Yes (Other)
  Sender: FDA-Public Use
  Company Number: 151-C5013-07021072

PATIENT
  Sex: Female

DRUGS (1)
  1. CC-5013 (LENALIDOMIDE) (CAPSULES) [Suspect]
     Indication: MYELODYSPLASTIC SYNDROME
     Dosage: SEE IMAGE
     Route: 048
     Dates: start: 20060801

REACTIONS (7)
  - APLASIA PURE RED CELL [None]
  - BONE MARROW FAILURE [None]
  - BONE MARROW TOXICITY [None]
  - BREAST CANCER [None]
  - DYSPLASIA [None]
  - KARYOTYPE ANALYSIS ABNORMAL [None]
  - MEGAKARYOCYTES INCREASED [None]
